FAERS Safety Report 9333036 (Version 3)
Quarter: 2014Q1

REPORT INFORMATION
  Report Type: Spontaneous
  Country: US (occurrence: US)
  Receive Date: 20130606
  Receipt Date: 20140124
  Transmission Date: 20141002
  Serious: Yes (Hospitalization)
  Sender: FDA-Public Use
  Company Number: US-BAYER-2013-069477

PATIENT
  Age: 35 Year
  Sex: Female
  Weight: 45.35 kg

DRUGS (4)
  1. YAZ [Suspect]
     Indication: ACNE
     Dosage: UNK
     Dates: start: 2010, end: 2011
  2. YAZ [Suspect]
     Indication: PREMENSTRUAL SYNDROME
  3. YAZ [Suspect]
     Indication: PREMENSTRUAL DYSPHORIC DISORDER
  4. SYNTHROID [Concomitant]

REACTIONS (8)
  - Injury [None]
  - Transient ischaemic attack [None]
  - Pain [None]
  - Pain [None]
  - Visual impairment [None]
  - Paraesthesia [None]
  - Abasia [None]
  - Speech disorder [None]
